FAERS Safety Report 8368262-6 (Version None)
Quarter: 2012Q2

REPORT INFORMATION
  Report Type: 
  Country: None (occurrence: None)
  Receive Date: 20120517
  Receipt Date: 20120507
  Transmission Date: 20120825
  Serious: Yes (Hospitalization)
  Sender: FDA-Public Use
  Company Number: CO-BAXTER-2012BAX005046

PATIENT
  Sex: Male

DRUGS (1)
  1. ADVATE [Suspect]
     Indication: IMMUNOMODULATORY THERAPY
     Route: 042
     Dates: start: 20120414, end: 20120414

REACTIONS (8)
  - GINGIVAL BLEEDING [None]
  - PYREXIA [None]
  - CYANOSIS [None]
  - MOVEMENT DISORDER [None]
  - MALAISE [None]
  - HEADACHE [None]
  - BACK PAIN [None]
  - MUSCLE HAEMORRHAGE [None]
